FAERS Safety Report 21830186 (Version 1)
Quarter: 2023Q1

REPORT INFORMATION
  Report Type: Spontaneous
  Country: US (occurrence: None)
  Receive Date: 20230105
  Receipt Date: 20230105
  Transmission Date: 20230418
  Serious: No
  Sender: FDA-Public Use
  Company Number: None

PATIENT
  Age: 38 Year
  Sex: Female

DRUGS (1)
  1. AMBRISENTAN [Suspect]
     Active Substance: AMBRISENTAN
     Indication: Scleroderma
     Dosage: FREQUENCY : DAILY;?
     Route: 048
     Dates: start: 20221031

REACTIONS (7)
  - Gangrene [None]
  - Scleroderma [None]
  - Headache [None]
  - Nausea [None]
  - Pain in jaw [None]
  - Condition aggravated [None]
  - Treatment failure [None]

NARRATIVE: CASE EVENT DATE: 20221222
